FAERS Safety Report 9006553 (Version 1)
Quarter: 2013Q1

REPORT INFORMATION
  Report Type: Spontaneous
  Country: CA (occurrence: CA)
  Receive Date: 20130110
  Receipt Date: 20130110
  Transmission Date: 20140127
  Serious: Yes (Life-Threatening, Hospitalization)
  Sender: FDA-Public Use
  Company Number: PHHY2012CA114941

PATIENT
  Sex: Male

DRUGS (4)
  1. LOPRESSOR [Suspect]
     Indication: ATRIAL FIBRILLATION
     Dosage: 25 MG, BID
     Route: 048
     Dates: start: 20120508, end: 20120912
  2. TASIGNA [Interacting]
     Indication: CHRONIC MYELOID LEUKAEMIA
     Dosage: 400 MG, BID
     Route: 048
  3. RYTHMOL [Interacting]
     Dosage: UNK UKN, UNK
     Dates: start: 201011
  4. ASA [Concomitant]

REACTIONS (4)
  - Acute myocardial infarction [Unknown]
  - Coronary artery occlusion [Unknown]
  - Bradycardia [Recovering/Resolving]
  - Drug interaction [Unknown]
